FAERS Safety Report 8111891-5 (Version None)
Quarter: 2012Q1

REPORT INFORMATION
  Report Type: 
  Country: None (occurrence: None)
  Receive Date: 20120203
  Receipt Date: 20101222
  Transmission Date: 20120608
  Serious: No
  Sender: FDA-Public Use
  Company Number: US-GLAXOSMITHKLINE-A0901403A

PATIENT
  Age: 37 Year
  Sex: Female
  Weight: 66.4 kg

DRUGS (9)
  1. ARIXTRA [Suspect]
     Indication: PULMONARY EMBOLISM
     Dosage: 7.5MG PER DAY
     Route: 058
     Dates: start: 20110112, end: 20110301
  2. MULTI-VITAMINS [Concomitant]
  3. COLACE [Concomitant]
  4. PERCOCET [Concomitant]
  5. HEPARIN [Concomitant]
  6. LOVENOX [Concomitant]
  7. PROGESTERONE [Concomitant]
     Route: 067
  8. SYMBICORT [Concomitant]
  9. CALCIUM [Concomitant]

REACTIONS (3)
  - MATERNAL EXPOSURE DURING PREGNANCY [None]
  - CONTUSION [None]
  - INJECTION SITE IRRITATION [None]
